FAERS Safety Report 14664648 (Version 1)
Quarter: 2018Q1

REPORT INFORMATION
  Report Type: Spontaneous
  Country: US (occurrence: US)
  Receive Date: 20180320
  Receipt Date: 20180320
  Transmission Date: 20180509
  Serious: Yes (Disabling)
  Sender: FDA-Public Use
  Company Number: None

PATIENT
  Age: 54 Year
  Sex: Male
  Weight: 94.5 kg

DRUGS (5)
  1. ANDROGEL [Suspect]
     Active Substance: TESTOSTERONE
     Indication: HYPOGONADISM
     Dosage: ?          QUANTITY:2 PUMPS;?
     Route: 061
     Dates: start: 20180219, end: 20180319
  2. KLONOPIN [Concomitant]
     Active Substance: CLONAZEPAM
  3. MIRTAZAPINE. [Concomitant]
     Active Substance: MIRTAZAPINE
  4. NADOLOL. [Concomitant]
     Active Substance: NADOLOL
  5. LEVOTHYOXIN [Concomitant]
     Active Substance: LEVOTHYROXINE

REACTIONS (18)
  - Skin exfoliation [None]
  - Headache [None]
  - Heart rate increased [None]
  - Insomnia [None]
  - Application site erythema [None]
  - Application site irritation [None]
  - Erythema [None]
  - Application site swelling [None]
  - Application site pruritus [None]
  - Dizziness [None]
  - Application site pain [None]
  - Nausea [None]
  - Depressed level of consciousness [None]
  - Application site dryness [None]
  - Skin irritation [None]
  - Hot flush [None]
  - Fatigue [None]
  - Therapy change [None]

NARRATIVE: CASE EVENT DATE: 20180219
